FAERS Safety Report 8478533-0 (Version None)
Quarter: 2012Q2

REPORT INFORMATION
  Report Type: 
  Country: None (occurrence: None)
  Receive Date: 20120629
  Receipt Date: 20120621
  Transmission Date: 20120825
  Serious: Yes (Other)
  Sender: FDA-Public Use
  Company Number: US-SANOFI-AVENTIS-2012SA045113

PATIENT
  Sex: Male

DRUGS (2)
  1. LANTUS [Suspect]
     Indication: TYPE 2 DIABETES MELLITUS
     Dosage: DOSE:57 UNIT(S)
     Route: 058
     Dates: start: 20040101
  2. NOVOLOG [Concomitant]
     Dates: start: 20040101

REACTIONS (1)
  - LEUKAEMIA [None]
